FAERS Safety Report 5709100-7 (Version None)
Quarter: 2008Q2

REPORT INFORMATION
  Report Type: 
  Country: None (occurrence: None)
  Receive Date: 20080416
  Receipt Date: 20080416
  Transmission Date: 20081010
  Serious: Yes (Life-Threatening, Hospitalization, Other)
  Sender: FDA-Public Use
  Company Number: None

PATIENT
  Sex: Female
  Weight: 56.6996 kg

DRUGS (5)
  1. BUSPIRONE HCL [Suspect]
     Dosage: 5 MG TID PO
     Route: 048
     Dates: start: 20071023, end: 20071220
  2. ZOLOFT [Suspect]
     Dosage: 75 MG D PO
     Route: 048
     Dates: start: 20070322, end: 20071220
  3. TRAZODONE HCL [Concomitant]
  4. ZOLOFT [Concomitant]
  5. BUSPIRONE HCL [Concomitant]

REACTIONS (9)
  - CYSTITIS [None]
  - DEHYDRATION [None]
  - DEPRESSED LEVEL OF CONSCIOUSNESS [None]
  - DRUG INEFFECTIVE [None]
  - DYSPHAGIA [None]
  - LETHARGY [None]
  - ORAL INTAKE REDUCED [None]
  - RENAL FAILURE ACUTE [None]
  - STUPOR [None]
